FAERS Safety Report 7833401-X (Version None)
Quarter: 2011Q4

REPORT INFORMATION
  Report Type: 
  Country: None (occurrence: None)
  Receive Date: 20111020
  Receipt Date: 20111005
  Transmission Date: 20120403
  Serious: Yes (Hospitalization)
  Sender: FDA-Public Use
  Company Number: 2011SGN00215

PATIENT
  Age: 57 Year
  Sex: Male
  Weight: 80.6 kg

DRUGS (10)
  1. NAPROSYN [Concomitant]
  2. LOSARTAN POTASSIUM [Concomitant]
  3. SENOKOT (SENNA ALEXANDRINA FRUIT) [Concomitant]
  4. TRAMADOL HCL [Concomitant]
  5. LYRICA [Concomitant]
  6. SALBUTAMOL (SALBUTAMOL SULFATE) [Concomitant]
  7. BRENTUXIMAB VEDOTIN (BRENTUXIMAB VEDOTIN) INJECTION [Suspect]
     Indication: ANAPLASTIC LARGE CELL LYMPHOMA T- AND NULL-CELL TYPES
     Dosage: 1.8 MG/KG, Q21D, INTRAVENOUS
     Route: 042
     Dates: start: 20110815, end: 20110909
  8. ALLOPURINOL [Concomitant]
  9. CENTRUM (ASCORBIC ACID, BETACAROTENE, COLECALCIFEROL, FOLIC ACID, MINE [Concomitant]
  10. NEXIUM [Concomitant]

REACTIONS (15)
  - ALCOHOL USE [None]
  - SINUS TACHYCARDIA [None]
  - ASPARTATE AMINOTRANSFERASE INCREASED [None]
  - MENTAL STATUS CHANGES [None]
  - BLOOD ALKALINE PHOSPHATASE INCREASED [None]
  - ASTHENIA [None]
  - SKELETAL INJURY [None]
  - CONFUSIONAL STATE [None]
  - MUSCLE INJURY [None]
  - PANCREATITIS [None]
  - HYPERCALCAEMIA [None]
  - SOMNOLENCE [None]
  - BLOOD LACTIC ACID INCREASED [None]
  - PYELONEPHRITIS [None]
  - PNEUMONIA [None]
